FAERS Safety Report 10335915 (Version 1)
Quarter: 2014Q3

REPORT INFORMATION
  Report Type: Spontaneous
  Country: US (occurrence: US)
  Receive Date: 20140723
  Receipt Date: 20140723
  Transmission Date: 20150326
  Serious: No
  Sender: FDA-Public Use
  Company Number: US-BRISTOL-MYERS SQUIBB COMPANY-19235373

PATIENT
  Age: 63 Year
  Sex: Female
  Weight: 72.56 kg

DRUGS (1)
  1. COUMADIN [Suspect]
     Active Substance: WARFARIN SODIUM
     Indication: CARDIAC PACEMAKER INSERTION

REACTIONS (7)
  - Oral discomfort [Unknown]
  - Cheilitis [Unknown]
  - Oral pain [Unknown]
  - Dysgeusia [Unknown]
  - Tongue discolouration [Unknown]
  - Facial pain [Unknown]
  - Abdominal pain upper [Unknown]
